FAERS Safety Report 19954193 (Version 1)
Quarter: 2021Q4

REPORT INFORMATION
  Report Type: Spontaneous
  Country: DE (occurrence: DE)
  Receive Date: 20211013
  Receipt Date: 20211013
  Transmission Date: 20220304
  Serious: Yes (Hospitalization)
  Sender: FDA-Public Use
  Company Number: DE-ADRED-06664-01

PATIENT
  Age: 82 Year
  Sex: Male

DRUGS (20)
  1. TORSEMIDE [Suspect]
     Active Substance: TORSEMIDE
     Indication: Product used for unknown indication
     Dosage: 10 MILLIGRAM (1-0-0-0, TABLETTEN)
     Route: 048
  2. NALOXONE HYDROCHLORIDE\TILIDINE HYDROCHLORIDE [Suspect]
     Active Substance: NALOXONE HYDROCHLORIDE\TILIDINE HYDROCHLORIDE
     Indication: Product used for unknown indication
     Dosage: UNK (4|50 MG, 1-1-1-0, RETARD-TABLETTEN)
     Route: 048
  3. ALPRAZOLAM [Concomitant]
     Active Substance: ALPRAZOLAM
     Dosage: UNK (0.5 MG, EIN BIS 2 BEI BEDARF, TABLETTEN)
     Route: 048
  4. SPIRIVA [Concomitant]
     Active Substance: TIOTROPIUM BROMIDE MONOHYDRATE
     Dosage: 18 MICROGRAM(2-0-0-0, KAPSELN MIT INHALTIONSPULVER)
     Route: 055
  5. ALLOPURINOL [Concomitant]
     Active Substance: ALLOPURINOL
     Dosage: 100 MILLIGRAM (1-0-1-0, TABLETTEN)
     Route: 048
  6. CANDESARTAN [Concomitant]
     Active Substance: CANDESARTAN
     Dosage: 8 MILLIGRAM (1-0-0-0, TABLETTEN)
     Route: 048
  7. SIMETICON [Concomitant]
     Dosage: 250 MILLIGRAM (1-1-1-0, GRANULAT)
     Route: 048
  8. LEVOTHYROXINE [Concomitant]
     Active Substance: LEVOTHYROXINE
     Dosage: 50 MICROGRAM (1-0-0-0, TABLETTEN)
     Route: 048
  9. FLUTICASONE PROPIONATE\SALMETEROL XINAFOATE [Concomitant]
     Active Substance: FLUTICASONE PROPIONATE\SALMETEROL XINAFOATE
     Dosage: UNK (500|50 ?G, 1-0-1-0, INHALATIONSPULVER)
     Route: 055
  10. MIRTAZAPINE [Concomitant]
     Active Substance: MIRTAZAPINE
     Dosage: 30 MILLIGRAM (0.5-0-0.5-0, TABLETTEN)
     Route: 048
  11. METAMIZOLE [Concomitant]
     Active Substance: METAMIZOLE
     Dosage: 500 MILLIGRAM (30-30-30-0, TROPFEN)
     Route: 048
  12. TAMSULOSIN [Concomitant]
     Active Substance: TAMSULOSIN
     Dosage: 0.4 MILLIGRAM (2-0-0-0, RETARD-KAPSELN)
     Route: 048
  13. ESCITALOPRAM [Concomitant]
     Active Substance: ESCITALOPRAM OXALATE
     Dosage: 20 MILLIGRAM (0.5-0-0.5-0, TABLETTEN)
     Route: 048
  14. GLIMEPIRIDE [Concomitant]
     Active Substance: GLIMEPIRIDE
     Dosage: 1 MILLIGRAM (1-0-0-0, TABLETTEN)
     Route: 048
  15. PANTOPRAZOLE [Concomitant]
     Active Substance: PANTOPRAZOLE
     Dosage: 40 MILLIGRAM (1-0-1-0, TABLETTEN)
     Route: 048
  16. EMPAGLIFLOZIN [Concomitant]
     Active Substance: EMPAGLIFLOZIN
     Dosage: 10 MILLIGRAM (1-1-1-0, TABLETTEN)
     Route: 048
  17. PANCRELIPASE [Concomitant]
     Active Substance: PANCRELIPASE
     Dosage: UNK (2000 IE, 0-0-1-0, KAPSELN)
     Route: 048
  18. POTASSIUM CHLORIDE [Concomitant]
     Active Substance: POTASSIUM CHLORIDE
     Dosage: 314.7 MILLIGRAM (1-0-1-0, KAPSELN)
     Route: 048
  19. SODIUM PICOSULFATE [Concomitant]
     Active Substance: SODIUM PICOSULFATE
     Dosage: 7.5 MILLIGRAM (0-0-10-0, TROPFEN)
     Route: 048
  20. ZOLPIDEM [Concomitant]
     Active Substance: ZOLPIDEM TARTRATE
     Dosage: 10 MILLIGRAM (0-0-0-1, TROPFEN)
     Route: 048

REACTIONS (5)
  - Flatulence [Unknown]
  - Haematuria [Unknown]
  - Micturition disorder [Unknown]
  - Constipation [Unknown]
  - Abdominal pain [Unknown]
